FAERS Safety Report 8616062-1 (Version None)
Quarter: 2012Q3

REPORT INFORMATION
  Report Type: 
  Country: None (occurrence: None)
  Receive Date: 20120823
  Receipt Date: 20120815
  Transmission Date: 20120928
  Serious: Yes (Life-Threatening, Other)
  Sender: FDA-Public Use
  Company Number: JP-ROCHE-1088708

PATIENT
  Sex: Male
  Weight: 52 kg

DRUGS (5)
  1. RISPERDAL [Concomitant]
     Indication: SCHIZOPHRENIA
     Route: 048
     Dates: start: 20110113
  2. ROCEPHIN [Suspect]
     Indication: CHOLECYSTITIS ACUTE
     Route: 041
     Dates: start: 20120613, end: 20120620
  3. ROHYPNOL [Concomitant]
     Indication: INSOMNIA
     Route: 048
     Dates: start: 20110113
  4. CARBAMAZEPINE [Concomitant]
     Indication: EPILEPSY
     Route: 048
     Dates: start: 20120423, end: 20120627
  5. DONEPEZIL HCL [Concomitant]
     Indication: DEMENTIA ALZHEIMER'S TYPE
     Route: 048
     Dates: start: 20110113, end: 20120627

REACTIONS (2)
  - RENAL DISORDER [None]
  - DRUG ERUPTION [None]
